FAERS Safety Report 13888856 (Version 1)
Quarter: 2017Q3

REPORT INFORMATION
  Report Type: Report from Study
  Country: US (occurrence: US)
  Receive Date: 20170821
  Receipt Date: 20170821
  Transmission Date: 20171127
  Serious: Yes (Hospitalization, Other)
  Sender: FDA-Public Use
  Company Number: US-GILEAD-2017-0285470

PATIENT
  Age: 43 Year
  Sex: Female
  Weight: 85.3 kg

DRUGS (21)
  1. MAGNESIUM [Concomitant]
     Active Substance: MAGNESIUM
  2. NICOTINE. [Concomitant]
     Active Substance: NICOTINE
  3. QUETIAPINE. [Concomitant]
     Active Substance: QUETIAPINE
  4. RIFAXIMIN [Concomitant]
     Active Substance: RIFAXIMIN
  5. MYLANTA                            /02802001/ [Concomitant]
  6. FUROSEMIDE. [Concomitant]
     Active Substance: FUROSEMIDE
  7. OMEPRAZOLE. [Concomitant]
     Active Substance: OMEPRAZOLE
  8. CYCLOBENZAPRINE. [Concomitant]
     Active Substance: CYCLOBENZAPRINE
  9. FERROUS SULFATE. [Concomitant]
     Active Substance: FERROUS SULFATE
  10. LIDODERM [Concomitant]
     Active Substance: LIDOCAINE
  11. GLIPIZIDE. [Concomitant]
     Active Substance: GLIPIZIDE
  12. MULTIVITAMIN                       /07504101/ [Concomitant]
     Active Substance: VITAMINS
  13. OMEGA 3 FISH OIL                   /01334101/ [Concomitant]
     Active Substance: FISH OIL
  14. SPIRONOLACTONE. [Concomitant]
     Active Substance: SPIRONOLACTONE
  15. ZOFRAN [Concomitant]
     Active Substance: ONDANSETRON HYDROCHLORIDE
  16. GABAPENTIN. [Concomitant]
     Active Substance: GABAPENTIN
  17. TRAMADOL. [Concomitant]
     Active Substance: TRAMADOL
  18. ESCITALOPRAM [Concomitant]
     Active Substance: ESCITALOPRAM OXALATE
  19. METFORMIN [Concomitant]
     Active Substance: METFORMIN HYDROCHLORIDE
  20. SUCRALFATE. [Concomitant]
     Active Substance: SUCRALFATE
  21. SOFOSBUVIR W/VELPATASVIR [Suspect]
     Active Substance: SOFOSBUVIR\VELPATASVIR
     Indication: HEPATITIS C
     Dosage: 1 DF, QD
     Route: 048
     Dates: start: 20170317, end: 20170609

REACTIONS (2)
  - Transaminases increased [Recovered/Resolved]
  - Acute kidney injury [Recovered/Resolved]

NARRATIVE: CASE EVENT DATE: 20170512
